FAERS Safety Report 7802546-2 (Version None)
Quarter: 2011Q4

REPORT INFORMATION
  Report Type: 
  Country: None (occurrence: None)
  Receive Date: 20111007
  Receipt Date: 20111004
  Transmission Date: 20120403
  Serious: Yes (Other)
  Sender: FDA-Public Use
  Company Number: US-PFIZER INC-2011210000

PATIENT
  Sex: Male
  Weight: 104 kg

DRUGS (2)
  1. CHANTIX [Suspect]
     Indication: SMOKING CESSATION THERAPY
     Dosage: 0.5 MG, 1X/DAY
     Route: 048
     Dates: start: 20110406, end: 20110401
  2. CHANTIX [Suspect]
     Dosage: UNK
     Route: 048
     Dates: start: 20110401, end: 20110421

REACTIONS (1)
  - HEART RATE INCREASED [None]
